FAERS Safety Report 13649486 (Version 1)
Quarter: 2017Q2

REPORT INFORMATION
  Report Type: Report from Study
  Country: US (occurrence: US)
  Receive Date: 20170614
  Receipt Date: 20170614
  Transmission Date: 20170830
  Serious: Yes (Death, Hospitalization)
  Sender: FDA-Public Use
  Company Number: US-TORRENT-00002849

PATIENT
  Age: 73 Year
  Sex: Male

DRUGS (4)
  1. LOSARTAN POTASSIUM. [Suspect]
     Active Substance: LOSARTAN POTASSIUM
  2. AMLODIPINE BESYLATE. [Suspect]
     Active Substance: AMLODIPINE BESYLATE
  3. GLIPIZIDE. [Suspect]
     Active Substance: GLIPIZIDE
  4. METFORMIN [Suspect]
     Active Substance: METFORMIN HYDROCHLORIDE

REACTIONS (2)
  - Completed suicide [Fatal]
  - Toxicity to various agents [Fatal]
